FAERS Safety Report 20924410 (Version 1)
Quarter: 2022Q2

REPORT INFORMATION
  Report Type: Spontaneous
  Country: US (occurrence: None)
  Receive Date: 20220606
  Receipt Date: 20220606
  Transmission Date: 20220721
  Serious: No
  Sender: FDA-Public Use
  Company Number: None

PATIENT
  Age: 50 Year
  Sex: Male
  Weight: 92.25 kg

DRUGS (3)
  1. LAMOTRIGINE [Suspect]
     Active Substance: LAMOTRIGINE
     Indication: Depression
     Dosage: FREQUENCY : DAILY;?
     Route: 048
     Dates: start: 20220509, end: 20220518
  2. DEXTROAMPHETAMINE [Concomitant]
     Active Substance: DEXTROAMPHETAMINE
     Dates: start: 20181001
  3. LORAZEPAM [Concomitant]
     Active Substance: LORAZEPAM
     Dates: start: 20160404

REACTIONS (9)
  - Vision blurred [None]
  - Depression [None]
  - Affective disorder [None]
  - Libido decreased [None]
  - Myalgia [None]
  - Irritability [None]
  - Feeling abnormal [None]
  - Apathy [None]
  - Product substitution issue [None]

NARRATIVE: CASE EVENT DATE: 20220509
